FAERS Safety Report 10052141 (Version 1)
Quarter: 2014Q2

REPORT INFORMATION
  Report Type: Spontaneous
  Country: US (occurrence: None)
  Receive Date: 20140401
  Receipt Date: 20140401
  Transmission Date: 20141212
  Serious: Yes (Other)
  Sender: FDA-Public Use
  Company Number: None

PATIENT
  Age: 57 Year
  Sex: Female

DRUGS (1)
  1. PRADAXA [Suspect]
     Dosage: 2 PILLS TWICE DAILY TAKEN BY MOUTH
     Route: 048

REACTIONS (9)
  - Discomfort [None]
  - Vomiting [None]
  - Cough [None]
  - Fatigue [None]
  - Asthenia [None]
  - Dyspnoea [None]
  - Eyelid oedema [None]
  - Bronchospasm [None]
  - Swelling face [None]
